FAERS Safety Report 19654058 (Version 1)
Quarter: 2021Q3

REPORT INFORMATION
  Report Type: Spontaneous
  Country: GB (occurrence: GB)
  Receive Date: 20210804
  Receipt Date: 20210804
  Transmission Date: 20211014
  Serious: Yes (Other)
  Sender: FDA-Public Use
  Company Number: GB-SUN PHARMACEUTICAL INDUSTRIES LTD-2021RR-306574

PATIENT
  Age: 21 Year
  Sex: Male

DRUGS (7)
  1. HALOPERIDOL. [Suspect]
     Active Substance: HALOPERIDOL
     Indication: DISSOCIATIVE DISORDER
     Dosage: 5 MILLIGRAM, QD
     Route: 065
  2. ARIPIPRAZOLE. [Suspect]
     Active Substance: ARIPIPRAZOLE
     Dosage: 20 MILLIGRAM, DAILY
     Route: 065
  3. SERTRALINE [Suspect]
     Active Substance: SERTRALINE HYDROCHLORIDE
     Indication: DISSOCIATIVE DISORDER
     Dosage: 50 MILLIGRAM, QD, ONCE EVERY MORNING
     Route: 065
  4. LORAZEPAM. [Suspect]
     Active Substance: LORAZEPAM
     Indication: DISSOCIATIVE DISORDER
     Dosage: 1 MG, FOUR TIMES DAILY
     Route: 065
  5. QUETIAPINE. [Suspect]
     Active Substance: QUETIAPINE
     Indication: DISSOCIATIVE DISORDER
     Dosage: 50 MILLIGRAM, DAILY
     Route: 065
  6. DIAZEPAM. [Suspect]
     Active Substance: DIAZEPAM
     Indication: DISSOCIATIVE DISORDER
     Dosage: 10 MILLIGRAM, TID
     Route: 065
  7. ARIPIPRAZOLE. [Suspect]
     Active Substance: ARIPIPRAZOLE
     Indication: DISSOCIATIVE DISORDER
     Dosage: 10 MILLIGRAM, DAILY, AFTER THREE DAYS
     Route: 065

REACTIONS (2)
  - Drug ineffective [Unknown]
  - Musculoskeletal stiffness [Unknown]
